FAERS Safety Report 15087912 (Version 2)
Quarter: 2019Q1

REPORT INFORMATION
  Report Type: Spontaneous
  Country: FR (occurrence: FR)
  Receive Date: 20180629
  Receipt Date: 20190212
  Transmission Date: 20190417
  Serious: Yes (Hospitalization)
  Sender: FDA-Public Use
  Company Number: FR-ACCORD-068885

PATIENT
  Age: 72 Year
  Sex: Male
  Weight: 90 kg

DRUGS (10)
  1. OXALIPLATIN ACCORD [Suspect]
     Active Substance: OXALIPLATIN
     Indication: ADENOCARCINOMA OF COLON
     Route: 042
     Dates: start: 20170330, end: 20170621
  2. FOLINIC ACID [Concomitant]
     Active Substance: LEUCOVORIN
  3. KARDEGIC [Concomitant]
     Active Substance: ASPIRIN DL-LYSINE
  4. PREVISCAN [Concomitant]
  5. LOSARTAN. [Concomitant]
     Active Substance: LOSARTAN
  6. BISOPROLOL [Concomitant]
     Active Substance: BISOPROLOL
  7. AMLOR [Concomitant]
     Active Substance: AMLODIPINE BESYLATE
  8. FLUOROURACIL ACCORD [Suspect]
     Active Substance: FLUOROURACIL
     Indication: ADENOCARCINOMA OF COLON
     Route: 042
     Dates: start: 20170330, end: 20170831
  9. ESOMEPRAZOLE/ESOMEPRAZOLE MAGNESIUM/ESOMEPRAZOLE SODIUM [Concomitant]
  10. ATORVASTATIN [Concomitant]
     Active Substance: ATORVASTATIN

REACTIONS (1)
  - Neuropathy peripheral [Not Recovered/Not Resolved]

NARRATIVE: CASE EVENT DATE: 201706
